FAERS Safety Report 11365148 (Version 2)
Quarter: 2017Q2

REPORT INFORMATION
  Report Type: Report from Study
  Country: KR (occurrence: KR)
  Receive Date: 20150811
  Receipt Date: 20170605
  Transmission Date: 20170829
  Serious: Yes (Hospitalization)
  Sender: FDA-Public Use
  Company Number: KR-EISAI MEDICAL RESEARCH-EC-2015-009512

PATIENT
  Age: 55 Year
  Sex: Female
  Weight: 58 kg

DRUGS (16)
  1. SYLCON [Concomitant]
  2. LEUCOSTIM [Concomitant]
     Active Substance: FILGRASTIM
  3. MEGACE [Concomitant]
     Active Substance: MEGESTROL ACETATE
  4. HALAVEN [Suspect]
     Active Substance: ERIBULIN MESYLATE
     Indication: BREAST CANCER METASTATIC
     Route: 041
     Dates: start: 20150709, end: 20170529
  5. XPREVEN [Concomitant]
  6. ABILIFY [Concomitant]
     Active Substance: ARIPIPRAZOLE
  7. FENTAMAX [Concomitant]
  8. ZOMEBON [Concomitant]
  9. LYRICA [Concomitant]
     Active Substance: PREGABALIN
  10. RHINOVENT [Concomitant]
  11. FENTADUR [Concomitant]
  12. KANARB [Concomitant]
  13. NESP [Concomitant]
     Active Substance: DARBEPOETIN ALFA
  14. CALTEO [Concomitant]
  15. RINOEBASTEL [Concomitant]
  16. DUPHALAC [Concomitant]
     Active Substance: LACTULOSE

REACTIONS (1)
  - Neutropenia [Recovered/Resolved]

NARRATIVE: CASE EVENT DATE: 20150801
